FAERS Safety Report 4741538-7 (Version None)
Quarter: 2005Q3

REPORT INFORMATION
  Report Type: 
  Country: None (occurrence: None)
  Receive Date: 20050808
  Receipt Date: 20050725
  Transmission Date: 20060218
  Serious: Yes (Hospitalization)
  Sender: FDA-Public Use
  Company Number: 213704

PATIENT
  Age: 67 Year
  Sex: Male

DRUGS (6)
  1. MABTHERA(RITUXIMAB) CONC FOR SOLUTION FOR INFUSION [Suspect]
     Indication: NON-HODGKIN'S LYMPHOMA
     Dates: start: 20010928, end: 20011019
  2. CYCLOPHOSPHAMIDE [Concomitant]
  3. DOXORUBICIN HYDROCHLORIDE [Concomitant]
  4. VINCRISTINE [Concomitant]
  5. PREDNISONE [Concomitant]
  6. LANSOPRAZOLE [Concomitant]

REACTIONS (9)
  - ABDOMINAL PAIN [None]
  - ALANINE AMINOTRANSFERASE INCREASED [None]
  - BLOOD ALKALINE PHOSPHATASE INCREASED [None]
  - BLOOD CALCIUM DECREASED [None]
  - BLOOD SODIUM DECREASED [None]
  - C-REACTIVE PROTEIN INCREASED [None]
  - NAUSEA [None]
  - NEUTROPENIA [None]
  - VOMITING [None]
